FAERS Safety Report 9915893 (Version 1)
Quarter: 2014Q1

REPORT INFORMATION
  Report Type: Spontaneous
  Country: US (occurrence: None)
  Receive Date: 20140219
  Receipt Date: 20140219
  Transmission Date: 20141002
  Serious: Yes (Death)
  Sender: FDA-Public Use
  Company Number: SYM-2014-14703

PATIENT
  Age: 73 Year
  Sex: Female

DRUGS (1)
  1. XENAZINE (12.5 MILLIGRAM, TABLET) (TETRABENAZINE, TETRABENAZINE) [Suspect]
     Indication: HUNTINGTON^S DISEASE
     Dosage: 25MG IN AM, 12.5 MG IN PM, 12.5 MG AT BDTIME, ORAL
     Route: 048
     Dates: start: 20130914, end: 20140205

REACTIONS (3)
  - Dysphagia [None]
  - Disease progression [None]
  - Huntington^s disease [None]
